FAERS Safety Report 10291494 (Version 3)
Quarter: 2014Q3

REPORT INFORMATION
  Report Type: Spontaneous
  Country: JP (occurrence: None)
  Receive Date: 20140708
  Receipt Date: 20140808
  Transmission Date: 20150326
  Serious: Yes (Life-Threatening, Hospitalization, Other)
  Sender: FDA-Public Use
  Company Number: JP-016226

PATIENT
  Age: 78 Year
  Sex: Male
  Weight: 48 kg

DRUGS (16)
  1. BROTIZOLAM [Concomitant]
     Active Substance: BROTIZOLAM
  2. ADONA [Concomitant]
     Active Substance: CARBAZOCHROME SODIUM SULFONATE
  3. OXYCONTIN [Concomitant]
     Active Substance: OXYCODONE HYDROCHLORIDE
  4. ATARAX-P [Concomitant]
     Active Substance: HYDROXYZINE HYDROCHLORIDE
  5. DEGARELIX (GONAX) 240 MG [Suspect]
     Active Substance: DEGARELIX
     Indication: PROSTATE CANCER METASTATIC
     Route: 058
     Dates: start: 20140516, end: 20140516
  6. TAKEPRON [Concomitant]
     Active Substance: LANSOPRAZOLE
  7. VOLTAREN [Concomitant]
     Active Substance: DICLOFENAC SODIUM
  8. MOHRUS L [Concomitant]
     Active Substance: KETOPROFEN
  9. TRANSAMIN [Concomitant]
     Active Substance: TRANEXAMIC ACID
  10. LOXONIN [Concomitant]
     Active Substance: LOXOPROFEN SODIUM
  11. NORVASC [Concomitant]
     Active Substance: AMLODIPINE BESYLATE
  12. MUCOSOLVAN [Concomitant]
     Active Substance: AMBROXOL\CLENBUTEROL
  13. ACCOLATE [Concomitant]
     Active Substance: ZAFIRLUKAST
  14. EDIROL [Concomitant]
     Active Substance: ELDECALCITOL
  15. TERNELIN [Concomitant]
     Active Substance: TIZANIDINE
  16. CASODEX [Suspect]
     Active Substance: BICALUTAMIDE
     Indication: PROSTATE CANCER METASTATIC
     Route: 048
     Dates: start: 20140516, end: 20140528

REACTIONS (10)
  - Septic shock [None]
  - Haemodialysis [None]
  - Cardiomegaly [None]
  - Metabolic acidosis [None]
  - Respiratory failure [None]
  - Lactic acidosis [None]
  - Interstitial lung disease [None]
  - Renal failure acute [None]
  - Multi-organ failure [None]
  - Disseminated intravascular coagulation [None]

NARRATIVE: CASE EVENT DATE: 20140529
